FAERS Safety Report 7205467-1 (Version None)
Quarter: 2010Q4

REPORT INFORMATION
  Report Type: 
  Country: None (occurrence: None)
  Receive Date: 20101231
  Receipt Date: 20101228
  Transmission Date: 20110411
  Serious: Yes (Death)
  Sender: FDA-Public Use
  Company Number: PHHY2010US88586

PATIENT
  Sex: Male

DRUGS (1)
  1. EXJADE [Suspect]
     Indication: ESSENTIAL THROMBOCYTHAEMIA
     Dosage: 3500 MG, DAILY
     Route: 048

REACTIONS (1)
  - DEATH [None]
